FAERS Safety Report 24254288 (Version 1)
Quarter: 2024Q3

REPORT INFORMATION
  Report Type: Spontaneous
  Country: US (occurrence: None)
  Receive Date: 20240826
  Receipt Date: 20240826
  Transmission Date: 20241016
  Serious: Yes (Hospitalization)
  Sender: Public
  Company Number: None

PATIENT
  Age: 58 Year
  Sex: Male

DRUGS (3)
  1. CAPECITABINE [Suspect]
     Active Substance: CAPECITABINE
     Indication: Rectal cancer
  2. OXALIPLATIN [Concomitant]
  3. AVASTIN [Concomitant]

REACTIONS (6)
  - Abdominal abscess [None]
  - COVID-19 [None]
  - Pain [None]
  - Nausea [None]
  - Anxiety [None]
  - Abnormal dreams [None]
